FAERS Safety Report 8818245 (Version 8)
Quarter: 2015Q1

REPORT INFORMATION
  Report Type: Spontaneous
  Country: US (occurrence: US)
  Receive Date: 20121001
  Receipt Date: 20150219
  Transmission Date: 20150721
  Serious: Yes (Hospitalization, Other)
  Sender: FDA-Public Use
  Company Number: US-GLAXOSMITHKLINE-A0995148A

PATIENT
  Age: 21 Year
  Sex: Female

DRUGS (6)
  1. FLOLAN [Suspect]
     Active Substance: EPOPROSTENOL SODIUM
     Indication: COR PULMONALE CHRONIC
     Dosage: INCREASED TO 85 NG/KG/MIN, CONCENTRATION 90,000 NG/ML, PUMP RATE 71 ML/DAY81 NG/KG/MIN
     Route: 065
     Dates: start: 20071123
  2. FLOLAN [Suspect]
     Active Substance: EPOPROSTENOL SODIUM
     Indication: PULMONARY HYPERTENSION
     Dosage: UNK
     Dates: start: 20071123
  3. FLOLAN [Suspect]
     Active Substance: EPOPROSTENOL SODIUM
     Dosage: UNK
     Dates: start: 20071123
  4. FLOLAN [Suspect]
     Active Substance: EPOPROSTENOL SODIUM
     Dosage: 95 NG/KG/MIN CONTINUOUS; CONCENTRATION: 90,000 NG/ML; PUMP RATE: 76 ML/DAY; VIAL STRENGTH: 1.5 MG
     Dates: start: 20071123
  5. REVATIO [Concomitant]
     Active Substance: SILDENAFIL CITRATE
  6. FLOLAN [Suspect]
     Active Substance: EPOPROSTENOL SODIUM
     Dosage: 95 NG/KG/MIN CONTINUOUS; CONCENTRATION: 90,000 NG/ML; PUMP RATE: 76 ML/DAY; VIAL STRENGTH: 1.5 MG
     Dates: start: 20071123

REACTIONS (12)
  - Atrioventricular block [Recovered/Resolved]
  - Pneumonia [Unknown]
  - Vulvovaginal mycotic infection [Unknown]
  - Wheezing [Recovering/Resolving]
  - Upper respiratory tract infection [Unknown]
  - Atrial flutter [Recovered/Resolved]
  - Pulmonary hypertension [Unknown]
  - Device breakage [Recovered/Resolved]
  - Heart rate increased [Recovered/Resolved]
  - Tachycardia [Recovered/Resolved]
  - Dizziness [Recovered/Resolved]
  - Cough [Unknown]

NARRATIVE: CASE EVENT DATE: 20120917
